FAERS Safety Report 25785578 (Version 1)
Quarter: 2025Q3

REPORT INFORMATION
  Report Type: Spontaneous
  Country: EU (occurrence: EU)
  Receive Date: 20250910
  Receipt Date: 20250910
  Transmission Date: 20251020
  Serious: Yes (Other)
  Sender: REGENERON
  Company Number: EU-BAYER-2025A118839

PATIENT
  Age: 86 Year
  Sex: Female

DRUGS (2)
  1. EYLEA HD [Suspect]
     Active Substance: AFLIBERCEPT
     Indication: Diabetic retinal oedema
     Dates: start: 20240923
  2. UNSPECIFIED INGREDIENT [Concomitant]
     Active Substance: UNSPECIFIED INGREDIENT
     Indication: Product used for unknown indication

REACTIONS (6)
  - Keratic precipitates [Recovered/Resolved]
  - Visual acuity reduced [Recovered/Resolved]
  - Eye disorder [Recovered/Resolved]
  - Anterior chamber cell [Recovered/Resolved]
  - Vitreal cells [Recovered/Resolved]
  - Vision blurred [Recovered/Resolved]

NARRATIVE: CASE EVENT DATE: 20241011
